FAERS Safety Report 10362260 (Version 2)
Quarter: 2014Q3

REPORT INFORMATION
  Report Type: Spontaneous
  Country: CA (occurrence: None)
  Receive Date: 20140723
  Receipt Date: 20140827
  Transmission Date: 20150326
  Serious: Yes (Other)
  Sender: FDA-Public Use
  Company Number: CA14-512

PATIENT
  Age: 25 Year
  Sex: Female

DRUGS (4)
  1. KIVEXA [Concomitant]
     Active Substance: ABACAVIR SULFATE\LAMIVUDINE
  2. DICLECTIN [Suspect]
     Active Substance: DOXYLAMINE\PYRIDOXINE
     Indication: VOMITING
     Route: 048
  3. DICLECTIN [Suspect]
     Active Substance: DOXYLAMINE\PYRIDOXINE
     Indication: NAUSEA
     Route: 048
  4. KALETRA [Suspect]
     Active Substance: LOPINAVIR\RITONAVIR
     Indication: HIV INFECTION
     Route: 048
     Dates: start: 200812

REACTIONS (5)
  - Caesarean section [None]
  - Nausea [None]
  - Drug effect decreased [None]
  - Vomiting [None]
  - Cervix dystocia [None]

NARRATIVE: CASE EVENT DATE: 2013
